FAERS Safety Report 4437180-8 (Version None)
Quarter: 2004Q3

REPORT INFORMATION
  Report Type: 
  Country: None (occurrence: None)
  Receive Date: 20040827
  Receipt Date: 20040818
  Transmission Date: 20050211
  Serious: Yes (Hospitalization)
  Sender: FDA-Public Use
  Company Number: 2004228916US

PATIENT
  Age: 16 Year
  Sex: Female
  Weight: 46.3 kg

DRUGS (7)
  1. XANAX XR [Suspect]
     Indication: PANIC DISORDER
     Dosage: SEE IMAGE
     Route: 048
     Dates: start: 20040802, end: 20040808
  2. XANAX XR [Suspect]
     Indication: PANIC DISORDER
     Dosage: SEE IMAGE
     Route: 048
     Dates: start: 20040809, end: 20040812
  3. ZOLOFT [Concomitant]
  4. ALCOHOL [Concomitant]
  5. MARIJUANA (CANNABIS) [Concomitant]
  6. COCAINE (COCAINE) [Concomitant]
  7. NYQUIL (EPHEDRINE SULFATE) [Concomitant]

REACTIONS (8)
  - ANXIETY DISORDER [None]
  - DEPRESSION [None]
  - DISINHIBITION [None]
  - DRUG TOXICITY [None]
  - INTENTIONAL SELF-INJURY [None]
  - LACERATION [None]
  - MULTIPLE DRUG OVERDOSE INTENTIONAL [None]
  - OPPOSITIONAL DEFIANT DISORDER [None]
